FAERS Safety Report 5882032-X (Version None)
Quarter: 2008Q3

REPORT INFORMATION
  Report Type: 
  Country: None (occurrence: None)
  Receive Date: 20080912
  Receipt Date: 20080721
  Transmission Date: 20090109
  Serious: No
  Sender: FDA-Public Use
  Company Number: US-ABBOTT-08P-163-0465068-00

PATIENT
  Sex: Female
  Weight: 81.72 kg

DRUGS (7)
  1. HUMIRA [Suspect]
     Indication: ANKYLOSING SPONDYLITIS
     Route: 058
     Dates: start: 20080213
  2. METHOTREXATE [Interacting]
     Indication: ANKYLOSING SPONDYLITIS
     Dosage: 4-2.5 MG PILLS, 10 MG WEEKLY
     Route: 048
     Dates: start: 20050101
  3. PENTOSAN POLYSULFATE SODIUM [Concomitant]
     Indication: CYSTITIS INTERSTITIAL
     Route: 048
     Dates: start: 20010101
  4. DICYCLOMINE HCL [Concomitant]
     Indication: COLITIS ULCERATIVE
     Route: 048
     Dates: start: 20040101
  5. LEVOTHYROXINE SODIUM [Concomitant]
     Indication: HYPOTHYROIDISM
     Route: 048
     Dates: start: 19940101
  6. ALLOPURINOL [Concomitant]
     Indication: COLITIS ULCERATIVE
     Route: 048
     Dates: start: 19970101
  7. MOBIGESIC [Concomitant]
     Indication: ANTIINFLAMMATORY THERAPY
     Dosage: 2 DAILY, AS NEEDED
     Route: 048
     Dates: start: 20060101

REACTIONS (7)
  - BLISTER [None]
  - DERMATITIS ACNEIFORM [None]
  - DRUG INTERACTION [None]
  - FATIGUE [None]
  - FEELING HOT [None]
  - HYPOTENSION [None]
  - PROCEDURAL COMPLICATION [None]
